FAERS Safety Report 8247855-0 (Version None)
Quarter: 2012Q1

REPORT INFORMATION
  Report Type: 
  Country: None (occurrence: None)
  Receive Date: 20120330
  Receipt Date: 20120326
  Transmission Date: 20120608
  Serious: Yes (Life-Threatening, Other)
  Sender: FDA-Public Use
  Company Number: US-PFIZER INC-2011214335

PATIENT
  Sex: Male
  Weight: 70 kg

DRUGS (8)
  1. HYDROCHLOROTHIAZIDE [Concomitant]
     Indication: HYPERTENSION
     Dosage: 12.5 MG, 1X/DAY
     Route: 048
     Dates: start: 20110902
  2. BUPROPION HYDROCHLORIDE [Concomitant]
     Indication: DEPRESSION
     Dosage: 150 MG, 2X/DAY (EVERY 12 HOURS)
     Route: 048
     Dates: start: 20110921, end: 20120109
  3. MAGNESIUM OXIDE [Concomitant]
     Dosage: 400 MG, ALTERNATE DAY
  4. PROCHLORPERAZINE MALEATE [Concomitant]
     Indication: NAUSEA
     Dosage: 10 MG, (TAKE ONE BY MOUTH EVERY 6 HOURS IF NEEDED)
     Route: 048
  5. CAFFEINE [Concomitant]
     Dosage: 1/2 TO 1 TABLET TWICE A DAY AS NEEDED
  6. LOVENOX [Concomitant]
     Indication: THROMBOSIS PROPHYLAXIS
     Dosage: 70 MG, 1X/DAY
     Dates: start: 20111005, end: 20120109
  7. TYLENOL [Concomitant]
     Indication: PAIN
     Dosage: 1-2 TAB Q4-6 HOURS AS NEEDED
     Route: 048
  8. SUTENT [Suspect]
     Indication: METASTATIC RENAL CELL CARCINOMA
     Dosage: 50 MG, 1X/DAY, CYCLE 4 WEEKS ON AND 2 OFF
     Route: 048
     Dates: start: 20110902, end: 20111012

REACTIONS (12)
  - DEPRESSION [None]
  - ANGER [None]
  - ANGIOEDEMA [None]
  - DRUG HYPERSENSITIVITY [None]
  - LIPASE INCREASED [None]
  - FRUSTRATION [None]
  - GLOSSODYNIA [None]
  - INFLUENZA LIKE ILLNESS [None]
  - NAUSEA [None]
  - AMYLASE INCREASED [None]
  - DYSGEUSIA [None]
  - FATIGUE [None]
